FAERS Safety Report 8541378-7 (Version None)
Quarter: 2012Q3

REPORT INFORMATION
  Report Type: 
  Country: None (occurrence: None)
  Receive Date: 20120726
  Receipt Date: 20120717
  Transmission Date: 20120928
  Serious: Yes (Disabling, Other)
  Sender: FDA-Public Use
  Company Number: JP-VERTEX PHARMACEUTICALS INC.-AE-2012-008225

PATIENT
  Age: 47 Year
  Sex: Male

DRUGS (14)
  1. REBETOL [Concomitant]
     Indication: HEPATITIS C
     Route: 048
     Dates: end: 20120501
  2. LANTUS [Concomitant]
     Route: 058
     Dates: start: 20120222
  3. LANTUS [Concomitant]
     Route: 058
  4. TELAVIC (TELAPREVIR) [Suspect]
     Indication: HEPATITIS C
     Route: 048
     Dates: start: 20120406, end: 20120510
  5. TELAVIC (TELAPREVIR) [Suspect]
     Route: 048
     Dates: start: 20120511, end: 20120518
  6. PEG-INTRON [Concomitant]
     Route: 058
     Dates: start: 20120518, end: 20120601
  7. LOXOPROFEN [Concomitant]
     Route: 048
     Dates: start: 20120406
  8. REBETOL [Concomitant]
     Route: 048
     Dates: start: 20120518, end: 20120525
  9. PEG-INTRON [Concomitant]
     Indication: HEPATITIS C
     Route: 058
     Dates: end: 20120427
  10. HUMALOG [Concomitant]
     Route: 058
     Dates: start: 20120222
  11. PEG-INTRON [Concomitant]
     Route: 058
     Dates: start: 20120608
  12. REBETOL [Concomitant]
     Route: 048
     Dates: start: 20120502, end: 20120518
  13. PEG-INTRON [Concomitant]
     Route: 058
     Dates: start: 20120504, end: 20120511
  14. HUMALOG [Concomitant]
     Route: 058

REACTIONS (2)
  - ANAEMIA [None]
  - RETINOPATHY [None]
